FAERS Safety Report 23879312 (Version 2)
Quarter: 2024Q2

REPORT INFORMATION
  Report Type: Spontaneous
  Country: DE (occurrence: DE)
  Receive Date: 20240521
  Receipt Date: 20240611
  Transmission Date: 20240715
  Serious: Yes (Other)
  Sender: FDA-Public Use
  Company Number: DE-BAYER-2024A073607

PATIENT
  Sex: Male

DRUGS (3)
  1. EYLEA HD [Suspect]
     Active Substance: AFLIBERCEPT
     Indication: Neovascular age-related macular degeneration
     Dosage: 8 MG, EVERY 4 WEEKS, SOLUTION FOR INJECTION , 114.3 MG/ML
     Route: 031
     Dates: start: 20240312, end: 20240312
  2. EYLEA HD [Suspect]
     Active Substance: AFLIBERCEPT
     Dosage: 8 MG, EVERY 4 WEEKS, SOLUTION FOR INJECTION , 114.3 MG/ML
     Route: 031
     Dates: start: 20240409, end: 20240409
  3. EYLEA HD [Suspect]
     Active Substance: AFLIBERCEPT
     Dosage: 8 MG, EVERY 4 WEEKS, SOLUTION FOR INJECTION, 114.3 MG/ML
     Route: 031
     Dates: start: 20240507, end: 20240507

REACTIONS (8)
  - Anterior chamber disorder [Unknown]
  - Vitritis [Recovering/Resolving]
  - Visual acuity reduced [Unknown]
  - Visual impairment [Recovering/Resolving]
  - Endothelial dysfunction [Recovering/Resolving]
  - Vitreous disorder [Recovering/Resolving]
  - Anterior chamber cell [Recovering/Resolving]
  - Vision blurred [Unknown]

NARRATIVE: CASE EVENT DATE: 20240515
